FAERS Safety Report 18068309 (Version 6)
Quarter: 2025Q2

REPORT INFORMATION
  Report Type: Report from Study
  Country: FR (occurrence: FR)
  Receive Date: 20200724
  Receipt Date: 20250407
  Transmission Date: 20250716
  Serious: No
  Sender: TAKEDA
  Company Number: FR-SHIRE-FR201850874

PATIENT
  Age: 74 Year
  Sex: Female

DRUGS (23)
  1. TEDUGLUTIDE [Suspect]
     Active Substance: TEDUGLUTIDE
     Indication: Short-bowel syndrome
     Dosage: 3.4 MILLIGRAM, QD
     Dates: start: 20160628, end: 20190711
  2. TEDUGLUTIDE [Suspect]
     Active Substance: TEDUGLUTIDE
     Dosage: 3.6 MILLIGRAM, QD
     Dates: start: 20190712, end: 20191209
  3. TEDUGLUTIDE [Suspect]
     Active Substance: TEDUGLUTIDE
     Dosage: 3.4 MILLIGRAM, QD
     Dates: start: 20191210
  4. TEDUGLUTIDE [Suspect]
     Active Substance: TEDUGLUTIDE
  5. TERIPARATIDE [Concomitant]
     Active Substance: TERIPARATIDE
     Indication: Prophylaxis
     Dosage: 1 INTERNATIONAL UNIT, QD
  6. STEROGYL [Concomitant]
     Active Substance: ERGOCALCIFEROL
     Indication: Prophylaxis
  7. EUPANTOL [Concomitant]
     Active Substance: PANTOPRAZOLE SODIUM
     Indication: Gastrointestinal disorder prophylaxis
     Dosage: UNK, QD
  8. TAUROLIDINE [Concomitant]
     Active Substance: TAUROLIDINE
     Indication: Infection prophylaxis
     Dosage: UNK, QD
  9. INNOHEP [Concomitant]
     Active Substance: TINZAPARIN SODIUM
     Indication: Thrombosis prophylaxis
     Dosage: 0.6 MILLILITER, QD
  10. BROMAZEPAM [Concomitant]
     Active Substance: BROMAZEPAM
     Indication: Depression
     Dosage: 6 MILLIGRAM, QD
  11. IMODIUM [Concomitant]
     Active Substance: LOPERAMIDE HYDROCHLORIDE
     Indication: Prophylaxis
     Dosage: UNK, TID
  12. MAGNESIUM [Concomitant]
     Active Substance: MAGNESIUM
     Indication: Prophylaxis
     Dosage: UNK, TID
     Dates: end: 20180831
  13. GENTAMICIN [Concomitant]
     Active Substance: GENTAMICIN
     Indication: Gastroenteritis proteus
     Dosage: UNK UNK, QD
     Dates: start: 20180330, end: 201804
  14. CORDARONE [Concomitant]
     Active Substance: AMIODARONE HYDROCHLORIDE
     Indication: Arrhythmia
     Dosage: 200 MILLIGRAM, QD
  15. CORDARONE [Concomitant]
     Active Substance: AMIODARONE HYDROCHLORIDE
     Indication: Atrial fibrillation
  16. CITALOPRAM HYDROBROMIDE [Concomitant]
     Active Substance: CITALOPRAM HYDROBROMIDE
     Indication: Depression
     Dosage: 20 GTT DROPS, QD
  17. FOSFOMYCIN TROMETHAMINE [Concomitant]
     Active Substance: FOSFOMYCIN TROMETHAMINE
     Indication: Urinary tract infection
     Dosage: 1 INTERNATIONAL UNIT, QD
     Dates: start: 201712, end: 201802
  18. FOSFOMYCIN TROMETHAMINE [Concomitant]
     Active Substance: FOSFOMYCIN TROMETHAMINE
     Indication: Prophylaxis
  19. OFLOXACIN [Concomitant]
     Active Substance: OFLOXACIN
     Indication: Urinary tract infection
     Dosage: UNK, QD
     Dates: start: 201803, end: 201803
  20. SODIUM PHOSPHATE, DIBASIC\SODIUM PHOSPHATE, MONOBASIC [Concomitant]
     Active Substance: SODIUM PHOSPHATE, DIBASIC\SODIUM PHOSPHATE, MONOBASIC
     Indication: Secretion discharge
     Dosage: UNK, QD
     Dates: start: 201803, end: 201803
  21. FLAGYL [Concomitant]
     Active Substance: METRONIDAZOLE\METRONIDAZOLE HYDROCHLORIDE
     Indication: Abdominal pain upper
     Dosage: UNK UNK, BID
     Dates: start: 20180330, end: 201804
  22. CALCIUM\CHOLECALCIFEROL [Concomitant]
     Active Substance: CALCIUM\CHOLECALCIFEROL
     Indication: Prophylaxis
     Dosage: 2 INTERNATIONAL UNIT, BID
  23. DOMPERIDONE [Concomitant]
     Active Substance: DOMPERIDONE
     Indication: Prophylaxis
     Dosage: 10 MILLIGRAM, QD

REACTIONS (5)
  - Large intestine polyp [Recovered/Resolved]
  - Urinary tract infection [Recovered/Resolved]
  - Anal incontinence [Recovered/Resolved]
  - Gastritis [Recovered/Resolved]
  - Abdominal pain upper [Recovered/Resolved]

NARRATIVE: CASE EVENT DATE: 20180201
